FAERS Safety Report 7627524 (Version 7)
Quarter: 2013Q1

REPORT INFORMATION
  Report Type: Spontaneous
  Country: US (occurrence: US)
  Receive Date: 20101013
  Receipt Date: 20130214
  Transmission Date: 20140127
  Serious: Yes (Hospitalization, Other)
  Sender: FDA-Public Use
  Company Number: US-JNJFOC-20101001066

PATIENT
  Sex: Male
  Weight: 226.8 kg

DRUGS (20)
  1. REMICADE [Suspect]
     Indication: RHEUMATOID ARTHRITIS
     Dosage: 4 BOTTLES PER INFUSION
     Route: 042
     Dates: end: 2010
  2. REMICADE [Suspect]
     Indication: RHEUMATOID ARTHRITIS
     Dosage: 4 BOTTLES PER INFUSION
     Route: 042
     Dates: end: 2005
  3. REMICADE [Suspect]
     Indication: RHEUMATOID ARTHRITIS
     Dosage: 4 BOTTLES PER INFUSION
     Route: 042
     Dates: start: 2005
  4. REMICADE [Suspect]
     Indication: RHEUMATOID ARTHRITIS
     Dosage: 4 BOTTLES PER INFUSION
     Route: 042
     Dates: start: 2011, end: 20120117
  5. REMICADE [Suspect]
     Indication: RHEUMATOID ARTHRITIS
     Dosage: 4 BOTTLES PER INFUSION
     Route: 042
     Dates: start: 2010, end: 2011
  6. REMICADE [Suspect]
     Indication: RHEUMATOID ARTHRITIS
     Dosage: 4 BOTTLES PER INFUSION
     Route: 042
     Dates: start: 2011, end: 2011
  7. MORPHINE [Suspect]
     Indication: PROCEDURAL PAIN
     Route: 065
     Dates: start: 201002, end: 201002
  8. METHOTREXATE [Concomitant]
     Indication: ARTHRITIS
     Route: 065
  9. FOLIC ACID [Concomitant]
     Route: 048
  10. GABAPENTIN [Concomitant]
     Indication: ARTHRITIS
     Route: 048
     Dates: start: 2004
  11. HYDROXYCHLOROQUINE [Concomitant]
  12. SLOW FE [Concomitant]
  13. SUPER B COMPLEX [Concomitant]
  14. ASTELIN [Concomitant]
  15. NASACORT [Concomitant]
  16. CENTRUM MULTIVITAMINS [Concomitant]
  17. CALTRATE [Concomitant]
  18. TYLENOL [Concomitant]
  19. MAALOX [Concomitant]
  20. CYMBALTA [Concomitant]
     Indication: ARTHRITIS
     Route: 048
     Dates: start: 2011

REACTIONS (21)
  - Neuralgia [Not Recovered/Not Resolved]
  - Nuclear magnetic resonance imaging abnormal [Unknown]
  - Abdominoplasty [Unknown]
  - Intestinal perforation [Unknown]
  - Surgery [Unknown]
  - Blood iron decreased [Unknown]
  - Abdominal hernia [Recovered/Resolved]
  - Inguinal hernia [Recovered/Resolved]
  - Spinal column injury [Not Recovered/Not Resolved]
  - Tooth extraction [Unknown]
  - Gastric bypass [Unknown]
  - Joint injury [Not Recovered/Not Resolved]
  - Spinal disorder [Recovered/Resolved]
  - Fall [Not Recovered/Not Resolved]
  - Head injury [Not Recovered/Not Resolved]
  - Feeling of body temperature change [Unknown]
  - Pain in extremity [Not Recovered/Not Resolved]
  - Nerve compression [Recovered/Resolved]
  - Procedural pain [Recovered/Resolved]
  - Tooth infection [Not Recovered/Not Resolved]
  - Pruritus [Recovered/Resolved]
